FAERS Safety Report 7344581-7 (Version None)
Quarter: 2011Q1

REPORT INFORMATION
  Report Type: 
  Country: None (occurrence: None)
  Receive Date: 20110310
  Receipt Date: 20110211
  Transmission Date: 20110831
  Serious: No
  Sender: FDA-Public Use
  Company Number: US-B.I. PHARMACEUTICALS,INC./RIDGEFIELD-2011-BP-00088BP

PATIENT
  Sex: Male

DRUGS (20)
  1. LIPITOR [Concomitant]
     Indication: BLOOD CHOLESTEROL INCREASED
  2. TRAMADOL [Concomitant]
     Indication: PAIN
  3. AZELASTINE SPRAY [Concomitant]
  4. MEDICATION NOT FURTHER SPECIFIED [Concomitant]
     Indication: MULTIPLE ALLERGIES
  5. FLUTICASONE [Concomitant]
  6. SPIRIVA [Suspect]
     Indication: CHRONIC OBSTRUCTIVE PULMONARY DISEASE
     Dosage: 18 MCG
     Route: 055
     Dates: start: 20101001, end: 20101101
  7. MULTIVITAMIN [Concomitant]
     Indication: PROPHYLAXIS
  8. METFORMIN [Concomitant]
     Indication: DIABETES MELLITUS
  9. TYLENOL [Concomitant]
  10. ISOSORBIDE DINITRATE [Concomitant]
     Indication: CARDIAC DISORDER
  11. PLAVIX [Concomitant]
     Indication: CARDIAC DISORDER
  12. VITAMIN D [Concomitant]
  13. DIOVAN [Concomitant]
     Indication: CARDIAC DISORDER
  14. NIASPAN [Concomitant]
     Indication: CARDIAC DISORDER
  15. SPIRIVA [Suspect]
     Dosage: 18 MCG
     Route: 055
     Dates: start: 20101201
  16. JANUVIA [Concomitant]
     Indication: DIABETES MELLITUS
  17. METOPROLOL [Concomitant]
     Indication: CARDIAC DISORDER
  18. NEXIUM [Concomitant]
     Indication: GASTROOESOPHAGEAL REFLUX DISEASE
  19. ALPRAZOLAM [Concomitant]
     Indication: ANXIETY
  20. ASPIRIN [Concomitant]
     Indication: PROPHYLAXIS
     Dosage: 81 MG

REACTIONS (2)
  - WHEEZING [None]
  - COUGH [None]
